FAERS Safety Report 11088705 (Version 6)
Quarter: 2019Q1

REPORT INFORMATION
  Report Type: Report from Study
  Country: DE (occurrence: DE)
  Receive Date: 20150504
  Receipt Date: 20190120
  Transmission Date: 20190417
  Serious: Yes (Death, Other)
  Sender: FDA-Public Use
  Company Number: DE-GILEAD-2015-0148611

PATIENT
  Age: 34 Year
  Sex: Female
  Weight: 90 kg

DRUGS (25)
  1. URSOFALK [Concomitant]
     Active Substance: URSODIOL
     Indication: CHRONIC HEPATITIS C
     Dosage: 500 MG, UNK
     Route: 065
  2. LEVOMETHADONE [Concomitant]
     Active Substance: LEVOMETHADONE
     Indication: DRUG DEPENDENCE
     Dosage: 100 MG, QD
     Route: 048
     Dates: start: 20100407
  3. HEPA-MERZ INFUSION [Concomitant]
  4. BIFITERAL [Concomitant]
     Active Substance: LACTULOSE
     Dosage: 60 ML, QD
     Dates: start: 20170817
  5. LEDIPASVIR/SOFOSBUVIR [Suspect]
     Active Substance: LEDIPASVIR\SOFOSBUVIR
     Indication: CHRONIC HEPATITIS C
     Dosage: 1 DF, QD
     Route: 048
     Dates: start: 20150210, end: 20150505
  6. ADCIRCA [Concomitant]
     Active Substance: TADALAFIL
     Indication: PULMONARY HYPERTENSION
     Dosage: 40 MG, QD
     Route: 048
     Dates: start: 20140421
  7. METOPROLOL. [Concomitant]
     Active Substance: METOPROLOL
     Indication: TACHYCARDIA
     Dosage: 23.75 MG, QD
     Route: 048
     Dates: start: 20150414, end: 20150417
  8. QUANTALAN [Concomitant]
     Active Substance: CHOLESTYRAMINE
     Dosage: UNK
     Route: 065
  9. DEKRISTOL [Concomitant]
     Active Substance: CHOLECALCIFEROL
     Dosage: UNK
     Route: 065
     Dates: start: 20150303, end: 20150811
  10. ARCOXIA [Concomitant]
     Active Substance: ETORICOXIB
     Dosage: 20 MG
  11. MERICOMB [Concomitant]
     Active Substance: ESTRADIOL VALERATE\NORETHINDRONE
     Indication: HORMONE REPLACEMENT THERAPY
     Dosage: 1 MG, QD
     Route: 048
     Dates: start: 20141124
  12. KALINOR-RETARD P [Concomitant]
     Indication: CARDIOVASCULAR DISORDER
     Dosage: UNK
     Route: 065
     Dates: start: 20150303
  13. LACTULOSE. [Concomitant]
     Active Substance: LACTULOSE
     Dosage: 20 ML
  14. CETIRIZIN [Concomitant]
     Active Substance: CETIRIZINE HYDROCHLORIDE
     Indication: CHRONIC HEPATITIS C
     Dosage: 10 MG, UNK
     Route: 065
     Dates: start: 20120820
  15. TORASEMID [Concomitant]
     Active Substance: TORSEMIDE
     Indication: HEPATIC CIRRHOSIS
     Dosage: 10 MG, QD
     Route: 048
     Dates: start: 20131230
  16. PANTOPRAZOLE [Concomitant]
     Active Substance: PANTOPRAZOLE
     Dosage: 40 MG
     Route: 065
  17. SPIRONOLACTON [Concomitant]
     Active Substance: SPIRONOLACTONE
     Indication: HEPATIC CIRRHOSIS
     Dosage: 125 MG, QD
     Route: 048
     Dates: start: 20100101
  18. ORNITHINASPARTAT [Concomitant]
     Indication: HEPATIC CIRRHOSIS
     Dosage: 6000 MG, TID
     Route: 048
     Dates: start: 20170803
  19. FENTANYL. [Concomitant]
     Active Substance: FENTANYL
     Dosage: 12 UG
     Dates: start: 20180606
  20. METOPROLOL. [Concomitant]
     Active Substance: METOPROLOL
     Dosage: 12 MG, UNK
     Route: 048
     Dates: start: 20150418
  21. ORNITHINASPARTAT [Concomitant]
     Indication: HEPATIC ENCEPHALOPATHY
  22. FOLSAN [Concomitant]
     Active Substance: FOLIC ACID
     Dosage: 5 MG
  23. RIFAXIMIN. [Concomitant]
     Active Substance: RIFAXIMIN
     Dosage: 550 MG
  24. TRAMAL [Concomitant]
     Active Substance: TRAMADOL
     Dosage: 50 MG
  25. NOVAMINSULFON [Concomitant]
     Active Substance: METAMIZOLE
     Dosage: 500 MG

REACTIONS (10)
  - Wolff-Parkinson-White syndrome [Recovered/Resolved]
  - Electrocardiogram QT prolonged [Recovered/Resolved]
  - Fatigue [Unknown]
  - Gastritis [Recovered/Resolved]
  - Supraventricular tachycardia [Recovered/Resolved]
  - Depressed mood [Unknown]
  - General physical health deterioration [Fatal]
  - Disturbance in attention [Unknown]
  - Dyspnoea [Recovered/Resolved]
  - Insomnia [Unknown]

NARRATIVE: CASE EVENT DATE: 20150413
